FAERS Safety Report 5512937-0 (Version None)
Quarter: 2007Q4

REPORT INFORMATION
  Report Type: 
  Country: None (occurrence: None)
  Receive Date: 20071112
  Receipt Date: 20071101
  Transmission Date: 20080405
  Serious: Yes (Other)
  Sender: FDA-Public Use
  Company Number: GB-AMGEN-US238692

PATIENT
  Sex: Female
  Weight: 66 kg

DRUGS (4)
  1. ENBREL [Suspect]
     Indication: DRUG USE FOR UNKNOWN INDICATION
     Route: 058
     Dates: start: 20061026, end: 20070101
  2. ENBREL [Suspect]
     Route: 058
     Dates: start: 20070901
  3. FOLIC ACID [Concomitant]
     Route: 048
  4. METHOTREXATE [Concomitant]
     Route: 048

REACTIONS (1)
  - BENIGN BREAST NEOPLASM [None]
